FAERS Safety Report 9705417 (Version 1)
Quarter: 2013Q4

REPORT INFORMATION
  Report Type: Spontaneous
  Country: US (occurrence: US)
  Receive Date: 20131122
  Receipt Date: 20131122
  Transmission Date: 20140711
  Serious: Yes (Other)
  Sender: FDA-Public Use
  Company Number: US-GLAXOSMITHKLINE-A1047768A

PATIENT
  Age: 63 Year
  Sex: Male

DRUGS (8)
  1. BENLYSTA [Suspect]
     Indication: PRODUCT USED FOR UNKNOWN INDICATION
     Dosage: 1440MG CYCLIC
     Route: 042
     Dates: start: 20131022
  2. TYLENOL [Concomitant]
  3. BENADRYL [Concomitant]
  4. HYDROXYCHLOROQUINE [Concomitant]
  5. POTASSIUM CHLORIDE [Concomitant]
  6. ASPIRIN [Concomitant]
  7. LEVOTHYROXINE [Concomitant]
  8. PREDNISONE [Concomitant]

REACTIONS (5)
  - Dyspnoea [Recovered/Resolved]
  - Urticaria [Recovered/Resolved]
  - Wheezing [Recovered/Resolved]
  - Pyrexia [Unknown]
  - Systemic lupus erythematosus [Unknown]
